FAERS Safety Report 17656304 (Version 1)
Quarter: 2020Q2

REPORT INFORMATION
  Report Type: Spontaneous
  Country: US (occurrence: US)
  Receive Date: 20200410
  Receipt Date: 20200410
  Transmission Date: 20200713
  Serious: Yes (Hospitalization)
  Sender: FDA-Public Use
  Company Number: None

PATIENT
  Age: 71 Year
  Sex: Female

DRUGS (5)
  1. GLATIRAMIR [Concomitant]
  2. TOVIAZ [Concomitant]
     Active Substance: FESOTERODINE FUMARATE
  3. GABAPENTIN. [Concomitant]
     Active Substance: GABAPENTIN
  4. PROLIA [Suspect]
     Active Substance: DENOSUMAB
     Indication: SENILE OSTEOPOROSIS
     Dosage: ?          OTHER FREQUENCY:EVERY 6  MONTHS;?
     Route: 058
     Dates: start: 20150526
  5. DORZOL/TIMOL SOL [Concomitant]

REACTIONS (3)
  - Fall [None]
  - Therapy interrupted [None]
  - Traumatic fracture [None]

NARRATIVE: CASE EVENT DATE: 20200212
